FAERS Safety Report 8797362 (Version 2)
Quarter: 2012Q4

REPORT INFORMATION
  Report Type: 
  Country: US (occurrence: US)
  Receive Date: 20120920
  Receipt Date: 20120924
  Transmission Date: 20130627
  Serious: No
  Sender: FDA-Public Use
  Company Number: US-PFIZER INC-2012232593

PATIENT
  Age: 70 Year
  Sex: Female
  Weight: 66.67 kg

DRUGS (2)
  1. LIPITOR [Suspect]
     Indication: BLOOD CHOLESTEROL INCREASED
     Dosage: 40 mg, daily at night
     Route: 048
     Dates: start: 1998, end: 20120912
  2. TAMBOCOR [Concomitant]
     Indication: ATRIAL FIBRILLATION
     Dosage: 100 mg, 2x/day

REACTIONS (3)
  - Muscle twitching [Recovering/Resolving]
  - Back disorder [Recovering/Resolving]
  - Tremor [Recovering/Resolving]
